FAERS Safety Report 8212667-0 (Version None)
Quarter: 2012Q1

REPORT INFORMATION
  Report Type: 
  Country: None (occurrence: None)
  Receive Date: 20120315
  Receipt Date: 20120228
  Transmission Date: 20120608
  Serious: Yes (Death, Hospitalization, Other)
  Sender: FDA-Public Use
  Company Number: AR-AMGEN-ARGSP2012009643

PATIENT
  Age: 60 Year
  Sex: Female
  Weight: 155 kg

DRUGS (4)
  1. LEFLUNOMIDE [Concomitant]
     Dosage: UNK
  2. METHOTREXATE [Concomitant]
     Dosage: UNK
  3. ANTIHYPERTENSIVES [Concomitant]
     Dosage: UNK
  4. ENBREL [Suspect]
     Indication: RHEUMATOID ARTHRITIS
     Dosage: 50 MG, WEEKLY
     Route: 058
     Dates: start: 20051109, end: 20110501

REACTIONS (7)
  - INFECTION [None]
  - THROMBOSIS [None]
  - CARDIAC FAILURE [None]
  - URINARY TRACT INFECTION [None]
  - CARDIO-RESPIRATORY ARREST [None]
  - RENAL FAILURE [None]
  - ANAEMIA [None]
